FAERS Safety Report 17361539 (Version 1)
Quarter: 2020Q1

REPORT INFORMATION
  Report Type: Report from Study
  Country: None (occurrence: BR)
  Receive Date: 20200203
  Receipt Date: 20200203
  Transmission Date: 20200409
  Serious: Yes (Other)
  Sender: FDA-Public Use
  Company Number: BR-ABBVIE-20K-020-3258131-00

PATIENT
  Age: 59 Year
  Sex: Male
  Weight: 66 kg

DRUGS (1)
  1. HUMIRA [Suspect]
     Active Substance: ADALIMUMAB
     Indication: ANKYLOSING SPONDYLITIS
     Dosage: UNSPECIFIED DOSE
     Route: 058
     Dates: start: 20160802, end: 20200117

REACTIONS (13)
  - Anxiety [Recovered/Resolved]
  - Pneumonia [Recovered/Resolved]
  - Lung neoplasm malignant [Unknown]
  - Computerised tomogram thorax abnormal [Not Recovered/Not Resolved]
  - Tracheal haemorrhage [Recovering/Resolving]
  - Rhinorrhoea [Not Recovered/Not Resolved]
  - Pulmonary mass [Not Recovered/Not Resolved]
  - Lung disorder [Not Recovered/Not Resolved]
  - Pruritus [Recovering/Resolving]
  - Mass [Recovering/Resolving]
  - Increased upper airway secretion [Recovering/Resolving]
  - Erythema [Recovering/Resolving]
  - Rash [Recovering/Resolving]

NARRATIVE: CASE EVENT DATE: 2019
